FAERS Safety Report 5968674-1 (Version None)
Quarter: 2008Q4

REPORT INFORMATION
  Report Type: 
  Country: None (occurrence: None)
  Receive Date: 20081121
  Receipt Date: 20081121
  Transmission Date: 20090506
  Serious: Yes (Hospitalization, Other)
  Sender: FDA-Public Use
  Company Number: None

PATIENT
  Age: 32 Year
  Sex: Male
  Weight: 79.3795 kg

DRUGS (2)
  1. MAXIPEN [Suspect]
     Indication: SINUSITIS
     Dosage: 40 MG TWICE DAILY PO ONLY USED ONCE
     Route: 048
     Dates: start: 20070801, end: 20070801
  2. PHENYLEPHRINE -GENERAL- [Suspect]
     Indication: NASAL DECONGESTION THERAPY
     Dates: start: 20081101, end: 20081101

REACTIONS (3)
  - HEADACHE [None]
  - MIGRAINE [None]
  - MUSCLE SPASMS [None]
